FAERS Safety Report 8772713 (Version 1)
Quarter: 2012Q4

REPORT INFORMATION
  Report Type: 
  Country: FR (occurrence: FR)
  Receive Date: 20120905
  Receipt Date: 20120905
  Transmission Date: 20130627
  Serious: Yes (Other)
  Sender: FDA-Public Use
  Company Number: FR-PFIZER INC-2012215834

PATIENT
  Age: 60 Year
  Sex: Male

DRUGS (4)
  1. ZOLOFT [Suspect]
     Dosage: 50 mg, 1x/day
     Dates: start: 2012, end: 20120820
  2. ZOLOFT [Suspect]
     Dosage: 50 mg, 2x/day
     Dates: start: 20120821
  3. ODRIK [Concomitant]
     Indication: HYPERTENSION
  4. BI-TILDIEM [Concomitant]
     Indication: HYPERTENSION

REACTIONS (3)
  - Ventricular extrasystoles [Unknown]
  - Palpitations [Unknown]
  - Hypertension [Unknown]
